FAERS Safety Report 16496210 (Version 1)
Quarter: 2019Q2

REPORT INFORMATION
  Report Type: Spontaneous
  Country: PR (occurrence: PR)
  Receive Date: 20190628
  Receipt Date: 20190628
  Transmission Date: 20190711
  Serious: No
  Sender: FDA-Public Use
  Company Number: PR-PRINSTON PHARMACEUTICAL INC.-2019PRN00167

PATIENT
  Age: 65 Year
  Sex: Female
  Weight: 90.25 kg

DRUGS (5)
  1. UNSPECIFIED MEDICATION FOR DIABETES [Concomitant]
  2. IRBESARTAN. [Suspect]
     Active Substance: IRBESARTAN
     Indication: HYPERTENSION
     Dosage: 300 MG, 1X/DAY
     Route: 048
     Dates: start: 201810, end: 201901
  3. UNSPECIFIED MEDICATION FOR STOMACH [Concomitant]
  4. IRBESARTAN AND HYDROCHLOROTHIAZIDE [Suspect]
     Active Substance: HYDROCHLOROTHIAZIDE\IRBESARTAN
     Indication: HYPERTENSION
     Dosage: 1 TABLETS, 1X/DAY
     Route: 048
     Dates: start: 201901, end: 2019
  5. UNSPECIFIED VITAMINS [Concomitant]
     Active Substance: VITAMINS

REACTIONS (6)
  - Headache [Recovered/Resolved]
  - Tachycardia [Recovered/Resolved]
  - Heart rate decreased [Recovered/Resolved]
  - Dizziness [Recovered/Resolved]
  - Hypertension [Unknown]
  - Insomnia [Recovered/Resolved]

NARRATIVE: CASE EVENT DATE: 201810
